FAERS Safety Report 8672348 (Version 6)
Quarter: 2014Q2

REPORT INFORMATION
  Report Type: Spontaneous
  Country: US (occurrence: US)
  Receive Date: 20120719
  Receipt Date: 20140501
  Transmission Date: 20141212
  Serious: No
  Sender: FDA-Public Use
  Company Number: US-PFIZER INC-2012171708

PATIENT
  Age: 77 Year
  Sex: Female

DRUGS (6)
  1. XALATAN [Suspect]
     Dosage: 1 GTT, IN LEFT EYE EVERY NIGHT AT BEDTIME
     Route: 047
     Dates: start: 2006
  2. XALATAN [Suspect]
     Dosage: 1 GTT, 1X/DAY (EVERY NIGHT AT BEDTIME)
     Route: 047
  3. CELECOXIB [Suspect]
     Dosage: UNK
     Dates: start: 2010
  4. SIMVASTATIN [Suspect]
     Indication: BLOOD CHOLESTEROL INCREASED
     Dosage: UNK
  5. ZOCOR [Suspect]
     Indication: BLOOD CHOLESTEROL INCREASED
     Dosage: UNK
  6. XALATAN [Concomitant]
     Dosage: UNK
     Route: 047

REACTIONS (4)
  - Nausea [Unknown]
  - Oropharyngeal pain [Unknown]
  - Incorrect dose administered [Unknown]
  - Product quality issue [Not Recovered/Not Resolved]
